FAERS Safety Report 6576600-X (Version None)
Quarter: 2010Q1

REPORT INFORMATION
  Report Type: 
  Country: None (occurrence: None)
  Receive Date: 20100210
  Receipt Date: 20100208
  Transmission Date: 20100710
  Serious: Yes (Death, Hospitalization, Other)
  Sender: FDA-Public Use
  Company Number: PHEH2008US09962

PATIENT
  Sex: Female

DRUGS (4)
  1. ZOMETA [Suspect]
  2. MULTI-VITAMINS [Concomitant]
  3. CALCIUM [Concomitant]
  4. DEXAMETHASONE [Concomitant]

REACTIONS (22)
  - ANXIETY [None]
  - ARTHRALGIA [None]
  - BREAST CANCER [None]
  - BREAST CANCER METASTATIC [None]
  - BRONCHITIS [None]
  - CONFUSIONAL STATE [None]
  - DECREASED INTEREST [None]
  - DEPRESSED LEVEL OF CONSCIOUSNESS [None]
  - DIZZINESS [None]
  - DYSARTHRIA [None]
  - GAIT DISTURBANCE [None]
  - GENERAL PHYSICAL HEALTH DETERIORATION [None]
  - HEADACHE [None]
  - HYDROCEPHALUS [None]
  - JOINT SWELLING [None]
  - MENINGITIS [None]
  - OSTEONECROSIS [None]
  - PAIN [None]
  - PLEURAL EFFUSION [None]
  - UNRESPONSIVE TO STIMULI [None]
  - UPPER RESPIRATORY TRACT INFECTION [None]
  - VOMITING [None]
